FAERS Safety Report 23978237 (Version 1)
Quarter: 2024Q2

REPORT INFORMATION
  Report Type: Report from Study
  Country: US (occurrence: US)
  Receive Date: 20240614
  Receipt Date: 20240614
  Transmission Date: 20240716
  Serious: Yes (Hospitalization, Other)
  Sender: FDA-Public Use
  Company Number: US-OTSUKA PHARMACEUTICAL NETHERLANDS B.V.-AUR-005688

PATIENT
  Sex: Female

DRUGS (1)
  1. LUPKYNIS [Suspect]
     Active Substance: VOCLOSPORIN
     Indication: Lupus nephritis
     Dosage: 23.7 MILLIGRAM, BID
     Route: 048
     Dates: start: 20221213

REACTIONS (10)
  - Hypertensive urgency [Unknown]
  - Renal failure [Unknown]
  - Nephrotic syndrome [Unknown]
  - Urine protein/creatinine ratio increased [Unknown]
  - Systemic lupus erythematosus [Unknown]
  - Proteinuria [Unknown]
  - Fatigue [Unknown]
  - Hypertension [Unknown]
  - Drug intolerance [Unknown]
  - Absence of immediate treatment response [Unknown]
